FAERS Safety Report 8279109-0 (Version None)
Quarter: 2012Q2

REPORT INFORMATION
  Report Type: 
  Country: None (occurrence: None)
  Receive Date: 20120412
  Receipt Date: 20110823
  Transmission Date: 20120825
  Serious: No
  Sender: FDA-Public Use
  Company Number: US-ASTRAZENECA-2011SE50464

PATIENT
  Age: 31 Year
  Sex: Male
  Weight: 49.4 kg

DRUGS (2)
  1. SLRAFATE [Concomitant]
     Indication: ABDOMINAL DISCOMFORT
  2. NEXIUM [Suspect]
     Indication: GASTROOESOPHAGEAL REFLUX DISEASE
     Route: 048

REACTIONS (2)
  - WEIGHT DECREASED [None]
  - DRUG DOSE OMISSION [None]
